FAERS Safety Report 22318231 (Version 1)
Quarter: 2023Q2

REPORT INFORMATION
  Report Type: Spontaneous
  Country: UA (occurrence: UA)
  Receive Date: 20230515
  Receipt Date: 20230515
  Transmission Date: 20230722
  Serious: Yes (Other)
  Sender: FDA-Public Use
  Company Number: UA-002147023-NVSC2023UA108788

PATIENT
  Age: 42 Year
  Sex: Female

DRUGS (1)
  1. METHOTREXATE [Suspect]
     Active Substance: METHOTREXATE
     Indication: Pulmonary sarcoidosis
     Dosage: 15 MG, QW
     Route: 065

REACTIONS (4)
  - Pulmonary sarcoidosis [Unknown]
  - Dyspnoea [Unknown]
  - Disease progression [Unknown]
  - Product use in unapproved indication [Unknown]
